FAERS Safety Report 5900979-2 (Version None)
Quarter: 2008Q3

REPORT INFORMATION
  Report Type: 
  Country: None (occurrence: None)
  Receive Date: 20080829
  Receipt Date: 20080630
  Transmission Date: 20090109
  Serious: No
  Sender: FDA-Public Use
  Company Number: PHEH2008US04072

PATIENT
  Sex: Female

DRUGS (4)
  1. EXJADE [Suspect]
     Indication: IRON OVERLOAD
     Dosage: 500 MG, QD, ORAL
     Route: 048
     Dates: start: 20080201, end: 20080226
  2. ASCORBIC ACID [Concomitant]
  3. PREMARIN [Concomitant]
  4. HERBAL EXTRACTS NOS (NO INGREDIENTS/SUBSTANCES) [Concomitant]

REACTIONS (5)
  - BLOOD IRON INCREASED [None]
  - DETOXIFICATION [None]
  - DYSPHAGIA [None]
  - MALIGNANT NEOPLASM PROGRESSION [None]
  - OESOPHAGEAL DISORDER [None]
